FAERS Safety Report 18780027 (Version 3)
Quarter: 2023Q1

REPORT INFORMATION
  Report Type: Other
  Country: FR (occurrence: FR)
  Receive Date: 20210125
  Receipt Date: 20230203
  Transmission Date: 20230417
  Serious: Yes (Other)
  Sender: FDA-Public Use
  Company Number: None

PATIENT

DRUGS (11)
  1. OMEPRAZOLE [Suspect]
     Active Substance: OMEPRAZOLE
     Indication: Gastrooesophageal reflux disease
     Dosage: 20 MILLIGRAM, QD
     Route: 048
  2. CETIRIZINE [Suspect]
     Active Substance: CETIRIZINE HYDROCHLORIDE
     Indication: Prophylaxis of nausea and vomiting
     Dosage: 10 MILLIGRAM (INTERVAL-1 CYCLICAL)
     Route: 048
  3. MORPHINE SULFATE [Suspect]
     Active Substance: MORPHINE SULFATE
     Indication: Pain
     Dosage: 5 MILLIGRAM, QD
     Route: 048
  4. CAPECITABINE [Suspect]
     Active Substance: CAPECITABINE
     Indication: Breast cancer metastatic
     Dosage: 10000 MILLIGRAM (INTERVAL-1 WEEK)
     Route: 048
     Dates: start: 2019, end: 20200908
  5. CIMETIDINE [Suspect]
     Active Substance: CIMETIDINE
     Indication: Prophylaxis of nausea and vomiting
     Dosage: 1000 MILLIGRAM(INTERVAL-1  CYCLICAL)
     Route: 048
  6. PACLITAXEL [Suspect]
     Active Substance: PACLITAXEL
     Indication: Breast cancer metastatic
     Dosage: 114 MILLIGRAM(INTERVAL-1 CYCLICAL)
     Route: 041
     Dates: start: 20200309, end: 20200825
  7. PERTUZUMAB [Suspect]
     Active Substance: PERTUZUMAB
     Indication: Breast cancer metastatic
     Dosage: 420 MILLIGRAM (INTERVAL-1 CYCLICAL)
     Route: 041
     Dates: start: 20200302
  8. PREDNISOLONE [Suspect]
     Active Substance: PREDNISOLONE
     Indication: Prophylaxis of nausea and vomiting
     Dosage: 40 MILLIGRAM(INTERVAL-1 CYCLICAL)
     Route: 048
  9. SKENAN [Suspect]
     Active Substance: MORPHINE SULFATE
     Indication: Pain
     Dosage: 30 MILLIGRAM, QD
     Route: 048
  10. TOUJEO [Suspect]
     Active Substance: INSULIN GLARGINE
     Indication: Insulin-requiring type 2 diabetes mellitus
     Dosage: 12 INTERNATIONAL UNIT, QD
     Route: 058
  11. TRASTUZUMAB [Suspect]
     Active Substance: TRASTUZUMAB
     Indication: Breast cancer metastatic
     Dosage: 294 MILLIGRAM, (INTERVAL-1 CYCLICAL)
     Dates: start: 20200302

REACTIONS (2)
  - Visual acuity reduced [Recovered/Resolved]
  - Keratitis [Recovered/Resolved]

NARRATIVE: CASE EVENT DATE: 20200601
